FAERS Safety Report 24141317 (Version 1)
Quarter: 2024Q3

REPORT INFORMATION
  Report Type: Report from Study
  Country: CA (occurrence: CA)
  Receive Date: 20240726
  Receipt Date: 20240726
  Transmission Date: 20241017
  Serious: Yes (Hospitalization)
  Sender: EISAI
  Company Number: CA-Eisai-EC-2024-170229

PATIENT
  Age: 64 Year
  Sex: Female

DRUGS (2)
  1. LENVIMA [Suspect]
     Active Substance: LENVATINIB
     Indication: Renal cell carcinoma
     Dosage: MISSED ONE DOSE ON JULY 4TH
     Route: 048
     Dates: start: 20240702
  2. KEYTRUDA [Concomitant]
     Active Substance: PEMBROLIZUMAB
     Indication: Renal cell carcinoma
     Dosage: DOSE AND FREQUENCY UNKNOWN

REACTIONS (2)
  - Posterior reversible encephalopathy syndrome [Unknown]
  - Hypertension [Unknown]

NARRATIVE: CASE EVENT DATE: 20240701
